FAERS Safety Report 8766203 (Version 1)
Quarter: 2012Q4

REPORT INFORMATION
  Report Type: 
  Country: FR (occurrence: FR)
  Receive Date: 20120904
  Receipt Date: 20120904
  Transmission Date: 20130627
  Serious: Yes (Other)
  Sender: FDA-Public Use
  Company Number: FR-ROCHE-1110831

PATIENT
  Age: 80 Year
  Sex: Female

DRUGS (2)
  1. BONVIVA [Suspect]
     Indication: OSTEOPOROSIS
     Route: 048
     Dates: start: 2009, end: 2011
  2. TANAKAN (FRANCE) [Concomitant]

REACTIONS (1)
  - Tibia fracture [Not Recovered/Not Resolved]
